FAERS Safety Report 8739829 (Version 2)
Quarter: 2013Q4

REPORT INFORMATION
  Report Type: Spontaneous
  Country: US (occurrence: US)
  Receive Date: 20120823
  Receipt Date: 20131101
  Transmission Date: 20140711
  Serious: No
  Sender: FDA-Public Use
  Company Number: US-009507513-1208USA000415

PATIENT
  Age: 81 Year
  Sex: Male

DRUGS (6)
  1. PROSCAR [Suspect]
     Indication: BENIGN PROSTATIC HYPERPLASIA
     Dosage: 5 MG, QD
     Route: 048
     Dates: start: 1988
  2. HYZAAR [Concomitant]
     Route: 048
  3. VYTORIN [Concomitant]
     Route: 048
  4. TRAZODONE HYDROCHLORIDE [Concomitant]
  5. VIAGRA [Concomitant]
  6. TOPROL XL TABLETS [Concomitant]

REACTIONS (3)
  - Breast mass [Not Recovered/Not Resolved]
  - Breast enlargement [Not Recovered/Not Resolved]
  - Breast tenderness [Not Recovered/Not Resolved]
